FAERS Safety Report 21280949 (Version 1)
Quarter: 2022Q3

REPORT INFORMATION
  Report Type: Spontaneous
  Country: US (occurrence: None)
  Receive Date: 20220901
  Receipt Date: 20220901
  Transmission Date: 20221026
  Serious: Yes (Hospitalization)
  Sender: FDA-Public Use
  Company Number: None

PATIENT
  Age: 77 Year
  Sex: Female

DRUGS (1)
  1. TALTZ [Suspect]
     Active Substance: IXEKIZUMAB
     Indication: Psoriasis
     Dosage: OTHER FREQUENCY : Q4W;?
     Route: 058
     Dates: start: 20200221

REACTIONS (2)
  - Clostridium difficile infection [None]
  - Hospitalisation [None]

NARRATIVE: CASE EVENT DATE: 20220829
